FAERS Safety Report 7860736-7 (Version None)
Quarter: 2011Q4

REPORT INFORMATION
  Report Type: 
  Country: None (occurrence: None)
  Receive Date: 20111027
  Receipt Date: 20111017
  Transmission Date: 20120403
  Serious: Yes (Other)
  Sender: FDA-Public Use
  Company Number: US-ELI_LILLY_AND_COMPANY-US201110004550

PATIENT
  Age: 28 Year
  Sex: Male

DRUGS (2)
  1. AXIRON [Suspect]
     Indication: BLOOD TESTOSTERONE DECREASED
     Dosage: 60 MG, UNKNOWN
     Dates: start: 20110901
  2. TESTOSTERONE [Concomitant]
     Dosage: UNK, UNKNOWN

REACTIONS (4)
  - DEEP VEIN THROMBOSIS [None]
  - MUSCLE STRAIN [None]
  - SKIN BURNING SENSATION [None]
  - PAIN IN EXTREMITY [None]
